FAERS Safety Report 24945584 (Version 3)
Quarter: 2025Q2

REPORT INFORMATION
  Report Type: Spontaneous
  Country: US (occurrence: US)
  Receive Date: 20250209
  Receipt Date: 20250616
  Transmission Date: 20250716
  Serious: No
  Sender: SANOFI AVENTIS
  Company Number: US-SA-2025SA038382

PATIENT
  Age: 50 Year
  Sex: Female

DRUGS (7)
  1. DUPIXENT [Suspect]
     Active Substance: DUPILUMAB
     Indication: Dermatitis atopic
     Dosage: 300.000MG QOW
     Route: 058
     Dates: start: 20241107
  2. CLOBETASOL [Concomitant]
     Active Substance: CLOBETASOL
     Dosage: 1 DF, BID
     Dates: start: 20241002
  3. CLOBETASOL [Concomitant]
     Active Substance: CLOBETASOL
     Dosage: 1 DF, BID
     Dates: start: 20240918
  4. METOPROLOL TARTRATE [Concomitant]
     Active Substance: METOPROLOL TARTRATE
  5. LOSARTAN [Concomitant]
     Active Substance: LOSARTAN
  6. TACROLIMUS [Concomitant]
     Active Substance: TACROLIMUS
     Dosage: 1 DF, BID
     Dates: start: 20241002
  7. HYDROCHLOROTHIAZIDE [Concomitant]
     Active Substance: HYDROCHLOROTHIAZIDE

REACTIONS (7)
  - Injection site pain [Unknown]
  - Inappropriate schedule of product administration [Unknown]
  - Dermatitis atopic [Unknown]
  - Pruritus [Unknown]
  - Inflammation [Unknown]
  - Dry skin [Unknown]
  - Skin exfoliation [Unknown]
